FAERS Safety Report 6094811-7 (Version None)
Quarter: 2009Q1

REPORT INFORMATION
  Report Type: 
  Country: None (occurrence: None)
  Receive Date: 20090225
  Receipt Date: 20090210
  Transmission Date: 20090719
  Serious: Yes (Other)
  Sender: FDA-Public Use
  Company Number: DSA_33196_2009

PATIENT
  Sex: Male

DRUGS (11)
  1. XENAZINE [Suspect]
     Indication: HUNTINGTON'S CHOREA
     Dosage: 12.5 MG QD, IN THE AM, 12.2 MG BID, AT MIDDAY AND PM), 12.5 MG, BID, IN AM AND NOON
     Dates: start: 20090101, end: 20090201
  2. XENAZINE [Suspect]
     Indication: HUNTINGTON'S CHOREA
     Dosage: 12.5 MG QD, IN THE AM, 12.2 MG BID, AT MIDDAY AND PM), 12.5 MG, BID, IN AM AND NOON
     Dates: start: 20090101
  3. XENAZINE [Suspect]
     Indication: HUNTINGTON'S CHOREA
     Dosage: 12.5 MG QD, IN THE AM, 12.2 MG BID, AT MIDDAY AND PM), 12.5 MG, BID, IN AM AND NOON
     Dates: start: 20090116
  4. SEROQUEL [Suspect]
     Indication: DRUG USE FOR UNKNOWN INDICATION
     Dosage: 100 MG AM AND LUNCH AND 200 MG AT BEDTIME, 200 MG QD, AT PM
  5. NEURONTIN [Concomitant]
  6. PREVACID [Concomitant]
  7. ZOLOFT [Concomitant]
  8. ATIVAN-GENERIC [Concomitant]
  9. BACLOFEN [Concomitant]
  10. CENTRUM SILVER [Concomitant]
  11. ASPIRIN [Concomitant]

REACTIONS (7)
  - ANXIETY [None]
  - ARTHRALGIA [None]
  - FEELING ABNORMAL [None]
  - HYPERKINESIA [None]
  - INSOMNIA [None]
  - RESTLESSNESS [None]
  - WITHDRAWAL SYNDROME [None]
